FAERS Safety Report 5416852-2 (Version None)
Quarter: 2007Q3

REPORT INFORMATION
  Report Type: 
  Country: None (occurrence: None)
  Receive Date: 20070816
  Receipt Date: 20070810
  Transmission Date: 20080115
  Serious: Yes (Other)
  Sender: FDA-Public Use
  Company Number: US-MERCK-0706USA04033

PATIENT
  Age: 74 Year
  Sex: Female
  Weight: 73 kg

DRUGS (8)
  1. JANUVIA [Suspect]
     Indication: TYPE 2 DIABETES MELLITUS
     Route: 048
     Dates: start: 20070508, end: 20070510
  2. [THERAPY UNSPECIFIED] [Concomitant]
     Route: 065
  3. AVANDIA [Concomitant]
     Indication: DIABETES MELLITUS
     Route: 048
  4. GLYBURIDE [Concomitant]
     Indication: DIABETES MELLITUS
     Route: 048
  5. GEMFIBROZIL [Concomitant]
     Indication: BLOOD CHOLESTEROL INCREASED
     Route: 048
  6. HYDROCHLOROTHIAZIDE [Concomitant]
     Indication: HYPERTENSION
     Route: 048
  7. LISINOPRIL [Concomitant]
     Indication: HYPERTENSION
     Route: 048
  8. [THERAPY UNSPECIFIED] [Concomitant]
     Route: 065

REACTIONS (1)
  - HYPOGLYCAEMIA [None]
